FAERS Safety Report 6640319-7 (Version None)
Quarter: 2010Q1

REPORT INFORMATION
  Report Type: 
  Country: None (occurrence: None)
  Receive Date: 20100318
  Receipt Date: 20100312
  Transmission Date: 20100710
  Serious: Yes (Hospitalization)
  Sender: FDA-Public Use
  Company Number: AU-ROCHE-690873

PATIENT
  Sex: Female
  Weight: 52 kg

DRUGS (5)
  1. DIAZEPAM [Suspect]
     Indication: DRUG USE FOR UNKNOWN INDICATION
     Route: 048
     Dates: start: 20090817
  2. DIAZEPAM [Suspect]
     Dosage: DOSE REDUCED
     Route: 048
  3. RISPERIDONE [Suspect]
     Indication: DRUG USE FOR UNKNOWN INDICATION
     Route: 065
     Dates: start: 20090707
  4. RISPERIDONE [Suspect]
     Dosage: DOSE REDUCED
     Route: 065
  5. CYMBALTA [Concomitant]
     Route: 048
     Dates: start: 20090816

REACTIONS (4)
  - DIZZINESS [None]
  - DROP ATTACKS [None]
  - HYPOTENSION [None]
  - SYNCOPE [None]
